FAERS Safety Report 4452082-9 (Version None)
Quarter: 2004Q3

REPORT INFORMATION
  Report Type: 
  Country: None (occurrence: None)
  Receive Date: 20040915
  Receipt Date: 20040915
  Transmission Date: 20050211
  Serious: Yes (Hospitalization)
  Sender: FDA-Public Use
  Company Number: None

PATIENT
  Age: 82 Year
  Sex: Male
  Weight: 74.3899 kg

DRUGS (10)
  1. ROSIGLITAZONE MALEATE [Suspect]
     Indication: DIABETES MELLITUS
     Dosage: 4 MG PO BID
     Route: 048
     Dates: start: 20030501, end: 20040801
  2. NOVOLIN N [Suspect]
     Indication: DIABETES MELLITUS
     Dosage: 7 UNITS SUB-Q AM
     Route: 058
     Dates: start: 20040301, end: 20040801
  3. GLYBURIDE [Concomitant]
  4. FUROSEMIDE [Concomitant]
  5. FOSINOPRIL SODIUM [Concomitant]
  6. DIGOXIN [Concomitant]
  7. METOPROLOL [Concomitant]
  8. OMEPRAZOLE [Concomitant]
  9. PIROXICAM [Concomitant]
  10. KCL TAB [Concomitant]

REACTIONS (6)
  - ATRIOVENTRICULAR BLOCK FIRST DEGREE [None]
  - BUNDLE BRANCH BLOCK LEFT [None]
  - CARDIAC FAILURE CONGESTIVE [None]
  - CHEST PAIN [None]
  - MYOCARDIAL INFARCTION [None]
  - SYSTOLIC HYPERTENSION [None]
